FAERS Safety Report 5082239-8 (Version None)
Quarter: 2006Q3

REPORT INFORMATION
  Report Type: 
  Country: None (occurrence: None)
  Receive Date: 20060814
  Receipt Date: 20060802
  Transmission Date: 20061208
  Serious: Yes (Other)
  Sender: FDA-Public Use
  Company Number: SU-2006-005241

PATIENT
  Age: 71 Year
  Sex: Female

DRUGS (1)
  1. BENICAR [Suspect]
     Indication: DRUG USE FOR UNKNOWN INDICATION
     Dosage: MG PO
     Route: 048

REACTIONS (1)
  - MYOCARDIAL INFARCTION [None]
